FAERS Safety Report 9237600 (Version 1)
Quarter: 2013Q2

REPORT INFORMATION
  Report Type: Spontaneous
  Country: BR (occurrence: BR)
  Receive Date: 20130418
  Receipt Date: 20130418
  Transmission Date: 20140414
  Serious: Yes (Other)
  Sender: FDA-Public Use
  Company Number: BR-PFIZER INC-2013116120

PATIENT
  Age: 79 Year
  Sex: Female

DRUGS (5)
  1. EFEXOR XR [Suspect]
     Dosage: 75 MG, DAILY
     Route: 048
     Dates: start: 20080411
  2. INSULIN [Concomitant]
     Indication: DIABETES MELLITUS MANAGEMENT
     Dosage: UNK, DAILY
     Dates: start: 2009
  3. PRESSAT [Concomitant]
     Indication: HYPERTENSION
     Dosage: 1 TABLET DAILY
     Dates: start: 2003
  4. RIVOTRIL [Concomitant]
     Indication: SLEEP DISORDER
     Dosage: 8 DROPS DAILY
     Dates: start: 2009
  5. RISPERIDONE [Concomitant]
     Dosage: 1 TABLET DAILY
     Dates: start: 2009

REACTIONS (2)
  - Abasia [Unknown]
  - Overweight [Unknown]
